FAERS Safety Report 8382054-3 (Version None)
Quarter: 2012Q2

REPORT INFORMATION
  Report Type: 
  Country: None (occurrence: None)
  Receive Date: 20120524
  Receipt Date: 20120508
  Transmission Date: 20120825
  Serious: Yes (Other)
  Sender: FDA-Public Use
  Company Number: CA-JNJFOC-20120509386

PATIENT
  Sex: Female

DRUGS (6)
  1. MS CONTIN [Concomitant]
     Dosage: PRN
     Route: 065
  2. PAMIDRONATE DISODIUM [Concomitant]
     Route: 065
  3. FOLIC ACID [Concomitant]
     Dosage: 5 DAYS/WEEK
     Route: 065
  4. CELEBREX [Concomitant]
     Route: 065
  5. METHOTREXATE [Concomitant]
     Route: 065
  6. REMICADE [Suspect]
     Indication: RHEUMATOID ARTHRITIS
     Route: 042
     Dates: start: 20001010

REACTIONS (1)
  - TIBIA FRACTURE [None]
